FAERS Safety Report 24639488 (Version 2)
Quarter: 2024Q4

REPORT INFORMATION
  Report Type: Spontaneous
  Country: US (occurrence: US)
  Receive Date: 20241119
  Receipt Date: 20241217
  Transmission Date: 20250115
  Serious: No
  Sender: ABBVIE
  Company Number: US-ABBVIE-6001704

PATIENT
  Age: 65 Year
  Sex: Male
  Weight: 91 kg

DRUGS (4)
  1. SYNTHROID [Suspect]
     Active Substance: LEVOTHYROXINE SODIUM
     Indication: Hypothyroidism
     Dosage: FORM STRENGTH:150 MICROGRAM
     Route: 048
  2. SYNTHROID [Suspect]
     Active Substance: LEVOTHYROXINE SODIUM
     Indication: Hypothyroidism
     Dosage: FORM STRENGTH:112 MICROGRAM?STOP DATE TEXT: SEP OR OCT 2023
     Route: 048
     Dates: start: 2019
  3. PAXIL [Concomitant]
     Active Substance: PAROXETINE HYDROCHLORIDE
     Indication: Insomnia
     Dosage: 20 MCG THAT HE BREAKS IN HALF?FREQUENCY TEXT: FIVE TIMES A WEEK
  4. CLONAZEPAM [Concomitant]
     Active Substance: CLONAZEPAM
     Indication: Sleep disorder

REACTIONS (1)
  - Low density lipoprotein increased [Recovered/Resolved]

NARRATIVE: CASE EVENT DATE: 20210101
